FAERS Safety Report 9764967 (Version 1)
Quarter: 2013Q4

REPORT INFORMATION
  Report Type: Spontaneous
  Country: US (occurrence: US)
  Receive Date: 20131217
  Receipt Date: 20131217
  Transmission Date: 20140711
  Serious: Yes (Hospitalization)
  Sender: FDA-Public Use
  Company Number: US-SUN PHARMACEUTICAL INDUSTRIES LTD-2013SUN05206

PATIENT
  Sex: 0

DRUGS (1)
  1. BACTRIM TABLETS, USP 400 MG/ 80 MG [Suspect]
     Indication: PRODUCT USED FOR UNKNOWN INDICATION
     Dosage: UNK
     Route: 065
     Dates: start: 1979

REACTIONS (2)
  - Heart rate increased [Unknown]
  - Loss of consciousness [Unknown]
